FAERS Safety Report 4269325-7 (Version None)
Quarter: 2004Q1

REPORT INFORMATION
  Report Type: 
  Country: None (occurrence: None)
  Receive Date: 20040109
  Receipt Date: 20030804
  Transmission Date: 20041129
  Serious: Yes (Congenital Anomaly)
  Sender: FDA-Public Use
  Company Number: M2004.6718

PATIENT
  Sex: Male
  Weight: 2.66 kg

DRUGS (5)
  1. ATENOLOL [Suspect]
     Indication: HYPERTENSION
     Dosage: 50MG, TRANSPLACENTAL
     Route: 064
     Dates: start: 20011109
  2. HYDRALAZINE HCL [Concomitant]
  3. ASPIRIN [Concomitant]
  4. PROFASI HP [Concomitant]
  5. BENDROFLUAZIDE [Concomitant]

REACTIONS (4)
  - ANAL ATRESIA [None]
  - MATERNAL DRUGS AFFECTING FOETUS [None]
  - MITRAL VALVE DISEASE [None]
  - PULMONARY VALVE STENOSIS CONGENITAL [None]
